FAERS Safety Report 7450454-1 (Version None)
Quarter: 2011Q2

REPORT INFORMATION
  Report Type: 
  Country: None (occurrence: None)
  Receive Date: 20110502
  Receipt Date: 20110419
  Transmission Date: 20111010
  Serious: Yes (Other)
  Sender: FDA-Public Use
  Company Number: PHHY2011US28956

PATIENT
  Sex: Female
  Weight: 102.95 kg

DRUGS (1)
  1. TEKTURNA [Suspect]
     Indication: BLOOD PRESSURE

REACTIONS (2)
  - MALIGNANT HYPERTENSION [None]
  - CHEST PAIN [None]
